FAERS Safety Report 16464598 (Version 1)
Quarter: 2019Q2

REPORT INFORMATION
  Report Type: Spontaneous
  Country: US (occurrence: US)
  Receive Date: 20190621
  Receipt Date: 20190621
  Transmission Date: 20190711
  Serious: Yes (Hospitalization)
  Sender: FDA-Public Use
  Company Number: PHHY2019US143039

PATIENT
  Age: 55 Year
  Sex: Male

DRUGS (1)
  1. GILENYA [Suspect]
     Active Substance: FINGOLIMOD HYDROCHLORIDE
     Indication: MULTIPLE SCLEROSIS
     Route: 065

REACTIONS (11)
  - Cerebral haematoma [Unknown]
  - Sleep disorder [Unknown]
  - Seizure [Unknown]
  - Dysphagia [Unknown]
  - Disorientation [Unknown]
  - Apraxia [Unknown]
  - Malignant melanoma stage IV [Unknown]
  - Metastases to central nervous system [Unknown]
  - Disturbance in attention [Unknown]
  - Back pain [Unknown]
  - Gait inability [Unknown]
